FAERS Safety Report 9519640 (Version 2)
Quarter: 2013Q3

REPORT INFORMATION
  Report Type: Report from Study
  Country: DE (occurrence: DE)
  Receive Date: 20130912
  Receipt Date: 20130918
  Transmission Date: 20140515
  Serious: Yes (Other)
  Sender: FDA-Public Use
  Company Number: DE-ROCHE-1272043

PATIENT
  Age: 69 Year
  Sex: Male
  Weight: 83 kg

DRUGS (2)
  1. TOCILIZUMAB [Suspect]
     Indication: RHEUMATOID ARTHRITIS
     Route: 042
     Dates: start: 20121108
  2. TOCILIZUMAB [Suspect]
     Dosage: DOSE REDUCED
     Route: 042
     Dates: start: 20130611

REACTIONS (1)
  - Gamma-glutamyltransferase increased [Recovering/Resolving]
